FAERS Safety Report 13640849 (Version 2)
Quarter: 2018Q2

REPORT INFORMATION
  Report Type: Spontaneous
  Country: US (occurrence: US)
  Receive Date: 20170612
  Receipt Date: 20180521
  Transmission Date: 20180711
  Serious: No
  Sender: FDA-Public Use
  Company Number: US-TEVA-749135USA

PATIENT
  Sex: Male

DRUGS (4)
  1. MULTIVITAMIN [Concomitant]
     Active Substance: VITAMINS
  2. DEHYDROEPIANDROSTERONE [Concomitant]
     Active Substance: PRASTERONE
  3. TESTOSTERONE. [Suspect]
     Active Substance: TESTOSTERONE
     Dosage: DOSE : 200 MG/UNK
     Route: 065
     Dates: start: 20170113, end: 20170310
  4. ANASTROZOLE. [Concomitant]
     Active Substance: ANASTROZOLE
     Dosage: 1 MG EVERY 3RD DAY

REACTIONS (4)
  - Blood testosterone decreased [Recovered/Resolved]
  - Libido decreased [Recovered/Resolved]
  - Drug ineffective [Unknown]
  - Hypotrichosis [Recovered/Resolved]
